FAERS Safety Report 13258406 (Version 2)
Quarter: 2017Q2

REPORT INFORMATION
  Report Type: Spontaneous
  Country: JP (occurrence: JP)
  Receive Date: 20170222
  Receipt Date: 20170503
  Transmission Date: 20170830
  Serious: Yes (Hospitalization)
  Sender: FDA-Public Use
  Company Number: JP-ABBVIE-17K-087-1882486-00

PATIENT
  Age: 71 Year
  Sex: Female
  Weight: 40 kg

DRUGS (18)
  1. HUMIRA [Suspect]
     Active Substance: ADALIMUMAB
     Indication: RHEUMATOID ARTHRITIS
     Route: 058
     Dates: start: 20160324, end: 2016
  2. HUMIRA [Suspect]
     Active Substance: ADALIMUMAB
     Route: 058
     Dates: start: 20160929
  3. PREDNISOLONE. [Concomitant]
     Active Substance: PREDNISOLONE
  4. SULFAMETHOXAZOLE AND TRIMETHOPRIM [Concomitant]
     Active Substance: SULFAMETHOXAZOLE\TRIMETHOPRIM
     Indication: PNEUMONIA
  5. HUMIRA [Suspect]
     Active Substance: ADALIMUMAB
     Route: 058
     Dates: start: 20160714, end: 2016
  6. RHEUMATREX [Suspect]
     Active Substance: METHOTREXATE SODIUM
     Dosage: 16 MG/WEEK
     Route: 048
     Dates: start: 20170209
  7. RHEUMATREX [Suspect]
     Active Substance: METHOTREXATE SODIUM
     Indication: RHEUMATOID ARTHRITIS
     Dosage: 16 MG/WEEK
     Route: 048
  8. PREDNISOLONE. [Concomitant]
     Active Substance: PREDNISOLONE
     Indication: PRODUCT USED FOR UNKNOWN INDICATION
     Dates: start: 20151211, end: 20151224
  9. HUMIRA [Suspect]
     Active Substance: ADALIMUMAB
     Route: 058
     Dates: start: 20160909, end: 201609
  10. PREDNISOLONE. [Concomitant]
     Active Substance: PREDNISOLONE
     Dosage: DOSE TAPERED DOWN
  11. SULFAMETHOXAZOLE AND TRIMETHOPRIM [Concomitant]
     Active Substance: SULFAMETHOXAZOLE\TRIMETHOPRIM
     Indication: PROPHYLAXIS
  12. PREDNISOLONE. [Concomitant]
     Active Substance: PREDNISOLONE
     Dates: start: 20160909, end: 2016
  13. PREDNISOLONE. [Concomitant]
     Active Substance: PREDNISOLONE
     Dosage: DOSE TAPERED DOWN
     Dates: start: 20170209
  14. ISONIAZID. [Concomitant]
     Active Substance: ISONIAZID
     Indication: ANTIBIOTIC PROPHYLAXIS
  15. HUMIRA [Suspect]
     Active Substance: ADALIMUMAB
     Route: 058
     Dates: start: 20170209
  16. RHEUMATREX [Suspect]
     Active Substance: METHOTREXATE SODIUM
     Route: 048
     Dates: start: 20160728, end: 2016
  17. RHEUMATREX [Suspect]
     Active Substance: METHOTREXATE SODIUM
     Dosage: 16 MG/WEEK
     Route: 048
     Dates: start: 20160909, end: 2016
  18. RHEUMATREX [Suspect]
     Active Substance: METHOTREXATE SODIUM
     Route: 048
     Dates: start: 20161007

REACTIONS (2)
  - Organising pneumonia [Recovered/Resolved]
  - Organising pneumonia [Recovering/Resolving]

NARRATIVE: CASE EVENT DATE: 20160630
